FAERS Safety Report 8739356 (Version 3)
Quarter: 2012Q4

REPORT INFORMATION
  Report Type: 
  Country: BE (occurrence: BE)
  Receive Date: 20120823
  Receipt Date: 20121214
  Transmission Date: 20130627
  Serious: Yes (Other)
  Sender: FDA-Public Use
  Company Number: PHHY2012BE070093

PATIENT
  Age: 40 Year
  Sex: Female

DRUGS (5)
  1. GILENYA [Suspect]
     Indication: MULTIPLE SCLEROSIS
     Dosage: 0.5 mg, QD
     Route: 048
     Dates: start: 20120305, end: 20120816
  2. WELLBUTRIN                         /00700502/ [Concomitant]
     Dosage: 150 mg, QD
  3. TRAZOLAN [Concomitant]
  4. DAFALGAN [Concomitant]
     Indication: PAIN
     Dosage: 500 mg or 1 g in pain
  5. OMEPRAZOL [Concomitant]
     Dosage: 40 mg, QD

REACTIONS (11)
  - Chest pain [Recovered/Resolved]
  - Salivary hypersecretion [Recovered/Resolved]
  - Neck pain [Recovered/Resolved]
  - Musculoskeletal pain [Recovered/Resolved]
  - Eructation [Recovered/Resolved]
  - Stress [Recovered/Resolved]
  - Quality of life decreased [Recovered/Resolved]
  - Chest discomfort [Recovered/Resolved]
  - Abdominal pain upper [Recovered/Resolved]
  - Heart rate decreased [Recovered/Resolved]
  - Dizziness [Recovered/Resolved]
